FAERS Safety Report 9116264 (Version 1)
Quarter: 2013Q1

REPORT INFORMATION
  Report Type: Spontaneous
  Country: US (occurrence: US)
  Receive Date: 20130225
  Receipt Date: 20130225
  Transmission Date: 20140127
  Serious: No
  Sender: FDA-Public Use
  Company Number: US-009507513-1302USA011645

PATIENT
  Sex: Male

DRUGS (3)
  1. CORICIDIN HBP COLD AND FLU [Suspect]
     Indication: PRODUCT USED FOR UNKNOWN INDICATION
     Dosage: UNK, ONCE
     Route: 048
     Dates: start: 20130212
  2. CORICIDIN HBP COLD AND FLU [Suspect]
     Dosage: UNK, ONCE
     Route: 048
     Dates: start: 20130213
  3. CORICIDIN HBP COLD AND FLU [Suspect]
     Dosage: UNK, ONCE
     Route: 048
     Dates: start: 20130213

REACTIONS (1)
  - Hyperhidrosis [Unknown]
